FAERS Safety Report 8947093 (Version 1)
Quarter: 2012Q4

REPORT INFORMATION
  Report Type: 
  Country: CA (occurrence: CA)
  Receive Date: 20121205
  Receipt Date: 20121205
  Transmission Date: 20130627
  Serious: No
  Sender: FDA-Public Use
  Company Number: CA-B.I. PHARMACEUTICALS,INC./RIDGEFIELD-2012-BI-01627BP

PATIENT
  Sex: Male

DRUGS (1)
  1. MIRAPEX [Suspect]
     Indication: PARKINSON^S DISEASE
     Dates: start: 20000229, end: 20070514

REACTIONS (8)
  - Hypomania [Unknown]
  - Hypersexuality [Unknown]
  - Aggression [Unknown]
  - Malaise [Unknown]
  - Abdominal pain upper [Unknown]
  - Musculoskeletal pain [Unknown]
  - Weight decreased [Unknown]
  - Decreased appetite [Unknown]
